FAERS Safety Report 6119152-0 (Version None)
Quarter: 2009Q1

REPORT INFORMATION
  Report Type: 
  Country: None (occurrence: None)
  Receive Date: 20090316
  Receipt Date: 20090306
  Transmission Date: 20090719
  Serious: Yes (Hospitalization)
  Sender: FDA-Public Use
  Company Number: US-BAYER-200910656BCC

PATIENT
  Sex: Male

DRUGS (1)
  1. ASPIRIN [Suspect]
     Indication: STROKE IN EVOLUTION
     Dosage: TOTAL DAILY DOSE: 975 MG  UNIT DOSE: 325 MG
     Dates: start: 20081231

REACTIONS (1)
  - ISCHAEMIC STROKE [None]
